FAERS Safety Report 8298774-5 (Version None)
Quarter: 2012Q2

REPORT INFORMATION
  Report Type: 
  Country: None (occurrence: None)
  Receive Date: 20120419
  Receipt Date: 20120411
  Transmission Date: 20120825
  Serious: Yes (Other)
  Sender: FDA-Public Use
  Company Number: US-CELGENEUS-163-21880-12041318

PATIENT
  Age: 57 Year
  Sex: Male
  Weight: 132 kg

DRUGS (4)
  1. REVLIMID [Suspect]
     Indication: MULTIPLE MYELOMA
     Dosage: 30 MILLIGRAM
     Route: 048
     Dates: start: 20110901
  2. REVLIMID [Suspect]
     Dosage: 15 MILLIGRAM
     Route: 048
     Dates: end: 20111201
  3. DEXAMETHASONE [Concomitant]
     Indication: MULTIPLE MYELOMA
     Route: 065
     Dates: start: 20110901, end: 20111201
  4. VELCADE [Concomitant]
     Indication: MULTIPLE MYELOMA
     Route: 065
     Dates: start: 20110901, end: 20111201

REACTIONS (2)
  - DIABETES MELLITUS [None]
  - NEUROPATHY PERIPHERAL [None]
